FAERS Safety Report 7832344-5 (Version None)
Quarter: 2011Q4

REPORT INFORMATION
  Report Type: 
  Country: None (occurrence: None)
  Receive Date: 20111022
  Receipt Date: 20111006
  Transmission Date: 20120403
  Serious: Yes (Other)
  Sender: FDA-Public Use
  Company Number: US-BAYER-2011-032868

PATIENT
  Age: 27 Year
  Sex: Female
  Weight: 95.238 kg

DRUGS (10)
  1. PENICILLIN [Concomitant]
  2. AMOXICILLIN [Concomitant]
  3. TYLENOL-500 [Concomitant]
  4. PHENTERMINE [Concomitant]
     Indication: MEDICAL DIET
     Dosage: 30 MG
  5. ZITHROMAX [Concomitant]
  6. IBUPROFEN (ADVIL) [Concomitant]
  7. YASMIN [Suspect]
     Dosage: UNK
     Dates: start: 20060201, end: 20081001
  8. COUMADIN [Concomitant]
  9. LOVENOX [Concomitant]
  10. MOTRIN [Concomitant]

REACTIONS (4)
  - MENTAL DISORDER [None]
  - DEEP VEIN THROMBOSIS [None]
  - INJURY [None]
  - PAIN [None]
